FAERS Safety Report 4622416-0 (Version None)
Quarter: 2005Q1

REPORT INFORMATION
  Report Type: 
  Country: None (occurrence: None)
  Receive Date: 20050325
  Receipt Date: 20050325
  Transmission Date: 20050727
  Serious: Yes (Other)
  Sender: FDA-Public Use
  Company Number: None

PATIENT
  Age: 45 Year
  Sex: Female
  Weight: 78.0187 kg

DRUGS (4)
  1. VIOXX [Suspect]
     Indication: ANTIINFLAMMATORY THERAPY
     Dates: start: 20030101, end: 20040101
  2. CELEBREX [Suspect]
     Dates: start: 20030101, end: 20040101
  3. BEXTRA [Suspect]
     Indication: MUSCLE RELAXANT THERAPY
     Dates: start: 20040101, end: 20050101
  4. BEXTRA [Suspect]
     Indication: PAIN
     Dates: start: 20040101, end: 20050101

REACTIONS (7)
  - BLOOD PRESSURE INCREASED [None]
  - CHEST PAIN [None]
  - DIZZINESS [None]
  - MUSCLE SPASMS [None]
  - PAIN IN EXTREMITY [None]
  - PRURITUS [None]
  - VOMITING [None]
